FAERS Safety Report 5835246-9 (Version None)
Quarter: 2008Q3

REPORT INFORMATION
  Report Type: 
  Country: None (occurrence: None)
  Receive Date: 20080806
  Receipt Date: 20080804
  Transmission Date: 20090109
  Serious: Yes (Disabling)
  Sender: FDA-Public Use
  Company Number: US-BAYER-200821205NA

PATIENT
  Sex: Female

DRUGS (2)
  1. AVELOX [Suspect]
     Indication: CHRONIC SINUSITIS
     Route: 048
     Dates: start: 20080201
  2. AVELOX [Suspect]
     Route: 048
     Dates: start: 20080301

REACTIONS (2)
  - DEAFNESS [None]
  - TINNITUS [None]
